FAERS Safety Report 23611220 (Version 1)
Quarter: 2024Q1

REPORT INFORMATION
  Report Type: Spontaneous
  Country: US (occurrence: US)
  Receive Date: 20240308
  Receipt Date: 20240308
  Transmission Date: 20240410
  Serious: Yes (Death, Hospitalization, Other)
  Sender: FDA-Public Use
  Company Number: US-FreseniusKabi-FK202403505

PATIENT
  Age: 65 Year
  Sex: Female

DRUGS (1)
  1. METHOTREXATE [Suspect]
     Active Substance: METHOTREXATE
     Indication: Central nervous system lymphoma

REACTIONS (9)
  - Toxicity to various agents [Fatal]
  - Myelosuppression [Fatal]
  - Acute kidney injury [Fatal]
  - Ulcer haemorrhage [Fatal]
  - Pharyngeal ulceration [Fatal]
  - Rash [Fatal]
  - Haemoptysis [Fatal]
  - Shock [Fatal]
  - Respiratory distress [Fatal]
